FAERS Safety Report 14532396 (Version 2)
Quarter: 2018Q1

REPORT INFORMATION
  Report Type: Report from Study
  Country: None (occurrence: US)
  Receive Date: 20180214
  Receipt Date: 20180223
  Transmission Date: 20180509
  Serious: Yes (Death, Other)
  Sender: FDA-Public Use
  Company Number: US-ABBVIE-18P-163-2252650-00

PATIENT
  Age: 84 Year
  Sex: Male
  Weight: 66.28 kg

DRUGS (2)
  1. ACYCLOVIR. [Concomitant]
     Active Substance: ACYCLOVIR
     Indication: INFECTION
  2. VENCLEXTA [Suspect]
     Active Substance: VENETOCLAX
     Indication: ACUTE MYELOID LEUKAEMIA
     Route: 048
     Dates: start: 20171115, end: 20180123

REACTIONS (7)
  - Malaise [Unknown]
  - Pyrexia [Fatal]
  - Leukaemia [Fatal]
  - Bone marrow failure [Fatal]
  - Hospice care [Unknown]
  - Bacterial infection [Fatal]
  - Red blood cell count decreased [Fatal]

NARRATIVE: CASE EVENT DATE: 201711
